FAERS Safety Report 9004642 (Version 1)
Quarter: 2013Q1

REPORT INFORMATION
  Report Type: Spontaneous
  Country: US (occurrence: US)
  Receive Date: 20130109
  Receipt Date: 20130109
  Transmission Date: 20140127
  Serious: No
  Sender: FDA-Public Use
  Company Number: US-PFIZER INC-2013005817

PATIENT
  Sex: Male

DRUGS (6)
  1. EFFEXOR XR [Suspect]
     Indication: DEPRESSION
     Dosage: 300 MG, 1X/DAY
  2. EFFEXOR XR [Suspect]
     Indication: ANXIETY DISORDER
  3. EFFEXOR XR [Suspect]
     Indication: SOCIAL PHOBIA
  4. PRISTIQ [Suspect]
     Indication: DEPRESSION
     Dosage: 50 MG, UNK
  5. PRISTIQ [Suspect]
     Indication: ANXIETY DISORDER
  6. PRISTIQ [Suspect]
     Indication: SOCIAL PHOBIA

REACTIONS (2)
  - Depression [Unknown]
  - Anxiety disorder [Unknown]
